FAERS Safety Report 19590834 (Version 3)
Quarter: 2024Q3

REPORT INFORMATION
  Report Type: Spontaneous
  Country: US (occurrence: US)
  Receive Date: 20210721
  Receipt Date: 20240924
  Transmission Date: 20241017
  Serious: No
  Sender: SANOFI AVENTIS
  Company Number: US-SA-SAC20210715000297

PATIENT
  Age: 76 Year
  Sex: Male

DRUGS (2)
  1. CAPRELSA [Suspect]
     Active Substance: VANDETANIB
     Indication: Thyroid cancer
     Dosage: 100 MG, QD
     Route: 048
  2. CAPRELSA [Suspect]
     Active Substance: VANDETANIB
     Dosage: 200 MG, QD
     Route: 048
     Dates: start: 20210619

REACTIONS (11)
  - Dysphonia [Unknown]
  - Memory impairment [Unknown]
  - Blood calcitonin increased [Unknown]
  - Walking aid user [Unknown]
  - Urinary incontinence [Unknown]
  - Renal disorder [Unknown]
  - Oxygen consumption increased [Unknown]
  - Laboratory test abnormal [Unknown]
  - Hypertension [Unknown]
  - Blood pressure increased [Unknown]
  - Asthenia [Unknown]

NARRATIVE: CASE EVENT DATE: 20240701
